FAERS Safety Report 19969648 (Version 1)
Quarter: 2021Q4

REPORT INFORMATION
  Report Type: Spontaneous
  Country: US (occurrence: US)
  Receive Date: 20211019
  Receipt Date: 20211019
  Transmission Date: 20220303
  Serious: No
  Sender: FDA-Public Use
  Company Number: US-GW PHARMA-202110USGW04953

PATIENT

DRUGS (5)
  1. EPIDIOLEX [Interacting]
     Active Substance: CANNABIDIOL
     Indication: Partial seizures
     Dosage: 9.67 MG/KG/DAY, 500 MILLIGRAM, BID
     Route: 048
     Dates: start: 201904
  2. EPIDIOLEX [Interacting]
     Active Substance: CANNABIDIOL
     Indication: Epilepsy
  3. EPIDIOLEX [Interacting]
     Active Substance: CANNABIDIOL
     Indication: Focal dyscognitive seizures
  4. EPIDIOLEX [Interacting]
     Active Substance: CANNABIDIOL
     Indication: Epilepsy
  5. CLARITHROMYCIN [Interacting]
     Active Substance: CLARITHROMYCIN
     Indication: Helicobacter infection
     Dosage: UNK
     Route: 065
     Dates: start: 20211004

REACTIONS (4)
  - Helicobacter infection [Unknown]
  - Weight decreased [Unknown]
  - Drug interaction [Unknown]
  - Product use in unapproved indication [Unknown]

NARRATIVE: CASE EVENT DATE: 20210101
